FAERS Safety Report 5443427-1 (Version None)
Quarter: 2007Q3

REPORT INFORMATION
  Report Type: 
  Country: None (occurrence: None)
  Receive Date: 20070831
  Receipt Date: 20070831
  Transmission Date: 20080115
  Serious: Yes (Other)
  Sender: FDA-Public Use
  Company Number: None

PATIENT
  Age: 30 Year
  Sex: Female
  Weight: 79.3795 kg

DRUGS (1)
  1. ALBUTEROL SULFATE [Suspect]
     Indication: ASTHMA
     Dosage: 90MCG AS NEEDED INHAL
     Route: 055
     Dates: start: 20070807, end: 20070831

REACTIONS (4)
  - EYE PAIN [None]
  - HEADACHE [None]
  - SENSATION OF PRESSURE [None]
  - SINUS HEADACHE [None]
